FAERS Safety Report 7568629-X (Version None)
Quarter: 2011Q2

REPORT INFORMATION
  Report Type: 
  Country: None (occurrence: None)
  Receive Date: 20110623
  Receipt Date: 20110615
  Transmission Date: 20111010
  Serious: Yes (Hospitalization)
  Sender: FDA-Public Use
  Company Number: PHHY2011FR52635

PATIENT
  Age: 5 Month
  Sex: Male

DRUGS (6)
  1. CELESTONE [Concomitant]
     Dosage: 0.05 %, UNK
  2. POLYSILANE [Concomitant]
  3. BUDESONIDE [Concomitant]
  4. CEFPODOXIME PROXETIL [Suspect]
     Indication: INFECTION
     Dosage: 1 DOSE-WEIGHT CORRESPONDING TO 8 KG IN THE MORNING AND 1 DOSE-WEIGHT CORRESPONDING TO 9KG IN EVENING
     Dates: start: 20110601, end: 20110601
  5. GAVISCON [Concomitant]
  6. OTIPAX [Concomitant]

REACTIONS (1)
  - GASTRITIS [None]
